FAERS Safety Report 16011008 (Version 1)
Quarter: 2019Q1

REPORT INFORMATION
  Report Type: Spontaneous
  Country: FR (occurrence: FR)
  Receive Date: 20190227
  Receipt Date: 20190227
  Transmission Date: 20190418
  Serious: Yes (Life-Threatening, Hospitalization)
  Sender: FDA-Public Use
  Company Number: FR-ACCORD-109356

PATIENT
  Age: 73 Year
  Sex: Female
  Weight: 55 kg

DRUGS (12)
  1. ESOMEPRAZOLE/ESOMEPRAZOLE MAGNESIUM/ESOMEPRAZOLE SODIUM [Suspect]
     Active Substance: ESOMEPRAZOLE
     Indication: OESOPHAGITIS
     Route: 048
     Dates: start: 20180801, end: 20180801
  2. BISOCE [Suspect]
     Active Substance: BISOPROLOL
     Indication: HYPERTENSION
     Route: 048
     Dates: start: 20180801, end: 20180801
  3. MOVICOL [Suspect]
     Active Substance: POLYETHYLENE GLYCOL 3350\POTASSIUM CHLORIDE\SODIUM BICARBONATE\SODIUM CHLORIDE
     Indication: PRODUCT USED FOR UNKNOWN INDICATION
     Route: 048
     Dates: start: 20180801, end: 20180801
  4. IMOVANE [Suspect]
     Active Substance: ZOPICLONE
     Indication: SEDATIVE THERAPY
     Route: 048
     Dates: start: 20180801, end: 20180801
  5. LOXAPAC [Suspect]
     Active Substance: LOXAPINE
     Indication: PRODUCT USED FOR UNKNOWN INDICATION
     Route: 048
     Dates: start: 20180801, end: 20180801
  6. TERALITHE [Suspect]
     Active Substance: LITHIUM CARBONATE
     Indication: PSYCHOTIC DISORDER
     Route: 048
     Dates: start: 20180801, end: 20180801
  7. OLANZAPINE. [Suspect]
     Active Substance: OLANZAPINE
     Indication: MIXED ANXIETY AND DEPRESSIVE DISORDER
     Route: 048
     Dates: start: 20180801, end: 20180801
  8. MIANSERIN/MIANSERIN HYDROCHLORIDE [Suspect]
     Active Substance: MIANSERIN\MIANSERIN HYDROCHLORIDE
     Indication: MIXED ANXIETY AND DEPRESSIVE DISORDER
     Route: 048
     Dates: start: 20180801, end: 20180801
  9. SERESTA [Suspect]
     Active Substance: OXAZEPAM
     Indication: MIXED ANXIETY AND DEPRESSIVE DISORDER
     Route: 048
     Dates: start: 20180801, end: 20180801
  10. BRINTELLIX [Suspect]
     Active Substance: VORTIOXETINE HYDROBROMIDE
     Indication: MIXED ANXIETY AND DEPRESSIVE DISORDER
     Route: 048
     Dates: start: 20180801, end: 20180801
  11. AMLODIPINE [Suspect]
     Active Substance: AMLODIPINE BESYLATE
     Indication: HYPERTENSION
     Route: 048
     Dates: start: 20180801, end: 20180801
  12. LAMICTAL [Suspect]
     Active Substance: LAMOTRIGINE
     Indication: MIXED ANXIETY AND DEPRESSIVE DISORDER
     Route: 048
     Dates: start: 20180801, end: 20180801

REACTIONS (4)
  - Oxygen saturation decreased [Recovered/Resolved]
  - Toxicity to various agents [Unknown]
  - Somnolence [Recovered/Resolved]
  - Antipsychotic drug level above therapeutic [Recovered/Resolved]

NARRATIVE: CASE EVENT DATE: 20180801
